FAERS Safety Report 10167266 (Version 1)
Quarter: 2014Q2

REPORT INFORMATION
  Report Type: Spontaneous
  Country: US (occurrence: None)
  Receive Date: 20140509
  Receipt Date: 20140509
  Transmission Date: 20141212
  Serious: Yes (Hospitalization)
  Sender: FDA-Public Use
  Company Number: None

PATIENT
  Age: 34 Year
  Sex: Female
  Weight: 56.7 kg

DRUGS (1)
  1. CHANTIX [Suspect]

REACTIONS (13)
  - Quality of life decreased [None]
  - Post-traumatic stress disorder [None]
  - Major depression [None]
  - Hypothyroidism [None]
  - Borderline personality disorder [None]
  - Avoidant personality disorder [None]
  - Schizoaffective disorder [None]
  - Suicidal ideation [None]
  - Violence-related symptom [None]
  - Brain injury [None]
  - Mood swings [None]
  - Anger [None]
  - Emotional distress [None]
